FAERS Safety Report 8710400 (Version 5)
Quarter: 2013Q1

REPORT INFORMATION
  Report Type: Spontaneous
  Country: GB (occurrence: GB)
  Receive Date: 20120807
  Receipt Date: 20130128
  Transmission Date: 20140127
  Serious: Yes (Disabling, Other)
  Sender: FDA-Public Use
  Company Number: GB-RANBAXY-2012R1-58590

PATIENT
  Age: 15 Year
  Sex: Female
  Weight: 55.8 kg

DRUGS (6)
  1. FLUOXETINE [Suspect]
     Indication: ANXIETY
     Dosage: 20 MG, QOD
     Route: 048
     Dates: start: 20120618, end: 20120702
  2. FLUOXETINE [Suspect]
     Indication: ASPERGER^S DISORDER
  3. FLUOXETINE [Suspect]
     Indication: OBSESSIVE THOUGHTS
  4. FLUOXETINE [Suspect]
     Indication: OBSESSIVE-COMPULSIVE DISORDER
  5. SEROQUEL [Concomitant]
     Indication: PSYCHOTIC DISORDER
     Dosage: 200 MG, QD
     Route: 065
     Dates: start: 201007
  6. SEROQUEL XL [Concomitant]
     Indication: PSYCHOTIC DISORDER
     Dosage: 200 MG, QD
     Route: 065
     Dates: start: 201007

REACTIONS (4)
  - Confusional state [Recovering/Resolving]
  - Inappropriate schedule of drug administration [Recovered/Resolved]
  - Amnesia [Recovering/Resolving]
  - Disorientation [Recovering/Resolving]
